FAERS Safety Report 12390467 (Version 3)
Quarter: 2016Q3

REPORT INFORMATION
  Report Type: Report from Study
  Country: US (occurrence: US)
  Receive Date: 20160520
  Receipt Date: 20160901
  Transmission Date: 20161109
  Serious: Yes (Death, Hospitalization, Other)
  Sender: FDA-Public Use
  Company Number: US-BAYER-2015-381997

PATIENT
  Age: 63 Year
  Sex: Female
  Weight: 52.61 kg

DRUGS (8)
  1. ADEMPAS [Suspect]
     Active Substance: RIOCIGUAT
     Indication: PULMONARY ARTERIAL HYPERTENSION
     Dosage: UNK
     Dates: start: 20150715
  2. ADEMPAS [Suspect]
     Active Substance: RIOCIGUAT
     Indication: PULMONARY ARTERIAL HYPERTENSION
     Dosage: 1 MG, TID
     Route: 048
  3. ADEMPAS [Suspect]
     Active Substance: RIOCIGUAT
     Indication: PULMONARY ARTERIAL HYPERTENSION
     Dosage: 1 MG, TID
     Route: 048
  4. ADEMPAS [Suspect]
     Active Substance: RIOCIGUAT
     Indication: PULMONARY HYPERTENSION
     Dosage: 1 MG, TID
     Route: 048
  5. ADEMPAS [Suspect]
     Active Substance: RIOCIGUAT
     Indication: PULMONARY ARTERIAL HYPERTENSION
     Dosage: 2.5 MG
  6. COUMADIN [Concomitant]
     Active Substance: WARFARIN SODIUM
  7. CALCIUM [Concomitant]
     Active Substance: CALCIUM
  8. ADEMPAS [Suspect]
     Active Substance: RIOCIGUAT
     Indication: PULMONARY ARTERIAL HYPERTENSION
     Dosage: 1 MG, TID
     Route: 048

REACTIONS (25)
  - Cough [Unknown]
  - Peripheral swelling [None]
  - Abasia [None]
  - Erythema [None]
  - Bone pain [Unknown]
  - Peripheral swelling [Unknown]
  - Weight increased [Unknown]
  - Thrombosis [None]
  - Hospitalisation [Recovered/Resolved]
  - Oedema peripheral [Unknown]
  - Malaise [Unknown]
  - Muscle spasms [None]
  - Skin warm [None]
  - Ascites [Unknown]
  - Intentional product misuse [Unknown]
  - Hypotension [None]
  - Hospitalisation [Unknown]
  - Back pain [Unknown]
  - Fall [Fatal]
  - Haematochezia [Unknown]
  - Pain in extremity [None]
  - Muscle spasms [Unknown]
  - Fall [Unknown]
  - Head injury [Fatal]
  - Localised infection [None]

NARRATIVE: CASE EVENT DATE: 2016
